FAERS Safety Report 12257146 (Version 1)
Quarter: 2016Q2

REPORT INFORMATION
  Report Type: Spontaneous
  Country: US (occurrence: None)
  Receive Date: 20160411
  Receipt Date: 20160411
  Transmission Date: 20160815
  Serious: Yes (Life-Threatening, Hospitalization)
  Sender: FDA-Public Use
  Company Number: None

PATIENT
  Age: 37 Year
  Sex: Male
  Weight: 87.2 kg

DRUGS (2)
  1. DAPSONE. [Suspect]
     Active Substance: DAPSONE
     Indication: PROPHYLAXIS
     Route: 048
     Dates: start: 20160127, end: 20160129
  2. LIDOCAINE/TETRACAINE [Suspect]
     Active Substance: LIDOCAINE\TETRACAINE
     Indication: BRONCHOSCOPY
     Dates: start: 20160127

REACTIONS (3)
  - Hypoxia [None]
  - Condition aggravated [None]
  - Blood methaemoglobin present [None]

NARRATIVE: CASE EVENT DATE: 20160128
